FAERS Safety Report 4600510-8 (Version None)
Quarter: 2005Q1

REPORT INFORMATION
  Report Type: 
  Country: None (occurrence: None)
  Receive Date: 20050304
  Receipt Date: 20050221
  Transmission Date: 20050727
  Serious: Yes (Other)
  Sender: FDA-Public Use
  Company Number: 2004120738

PATIENT
  Sex: Female

DRUGS (1)
  1. DETROL LA [Suspect]
     Indication: MIXED INCONTINENCE
     Dosage: 4 MG, ORAL
     Route: 048

REACTIONS (5)
  - BLADDER OPERATION [None]
  - CONDITION AGGRAVATED [None]
  - DRY MOUTH [None]
  - MIXED INCONTINENCE [None]
  - NO ADVERSE DRUG EFFECT [None]
